FAERS Safety Report 10289925 (Version 1)
Quarter: 2014Q3

REPORT INFORMATION
  Report Type: Spontaneous
  Country: US (occurrence: None)
  Receive Date: 20140707
  Receipt Date: 20140707
  Transmission Date: 20150326
  Serious: Yes (Other)
  Sender: FDA-Public Use
  Company Number: None

PATIENT
  Age: 57 Year
  Sex: Male

DRUGS (8)
  1. PREDNISONE. [Concomitant]
     Active Substance: PREDNISONE
  2. REGULAR INSULIN [Concomitant]
     Active Substance: INSULIN NOS
  3. AMITRIPTYLINE [Concomitant]
     Active Substance: AMITRIPTYLINE
  4. LISINOPRIL. [Concomitant]
     Active Substance: LISINOPRIL
  5. NPH INSULIN [Concomitant]
     Active Substance: INSULIN BEEF
  6. REVLIMID [Suspect]
     Active Substance: LENALIDOMIDE
     Indication: PLASMA CELL MYELOMA
     Route: 048
     Dates: start: 201209
  7. ATORVASTATIN [Concomitant]
     Active Substance: ATORVASTATIN
  8. ASA [Concomitant]
     Active Substance: ASPIRIN

REACTIONS (1)
  - Upper respiratory tract infection [None]

NARRATIVE: CASE EVENT DATE: 20140626
